FAERS Safety Report 13870302 (Version 3)
Quarter: 2017Q3

REPORT INFORMATION
  Report Type: Report from Study
  Country: US (occurrence: US)
  Receive Date: 20170815
  Receipt Date: 20170831
  Transmission Date: 20171127
  Serious: Yes (Hospitalization)
  Sender: FDA-Public Use
  Company Number: US-ACTELION-A-US2017-158059

PATIENT
  Age: 68 Year
  Sex: Female

DRUGS (15)
  1. SENSIPAR [Concomitant]
     Active Substance: CINACALCET HYDROCHLORIDE
  2. TRACLEER [Suspect]
     Active Substance: BOSENTAN
     Indication: PULMONARY ARTERIAL HYPERTENSION
     Dosage: 125 MG, QD
     Route: 048
     Dates: start: 20140207
  3. ATORVASTATIN [Concomitant]
     Active Substance: ATORVASTATIN
  4. TRACLEER [Suspect]
     Active Substance: BOSENTAN
     Dosage: 125 MG, BID
     Route: 048
  5. RENVELA [Concomitant]
     Active Substance: SEVELAMER CARBONATE
  6. LEVEMIR [Concomitant]
     Active Substance: INSULIN DETEMIR
  7. MIDODRINE [Concomitant]
     Active Substance: MIDODRINE
  8. LIOTHYRONINE [Concomitant]
     Active Substance: LIOTHYRONINE
  9. FASLODEX [Concomitant]
     Active Substance: FULVESTRANT
  10. PROTONIX [Concomitant]
     Active Substance: PANTOPRAZOLE SODIUM
  11. NOVOLOG [Concomitant]
     Active Substance: INSULIN ASPART
  12. PLAVIX [Concomitant]
     Active Substance: CLOPIDOGREL BISULFATE
  13. ALLOPURINOL. [Concomitant]
     Active Substance: ALLOPURINOL
  14. SILDENAFIL. [Concomitant]
     Active Substance: SILDENAFIL
  15. SYNTHROID [Concomitant]
     Active Substance: LEVOTHYROXINE SODIUM

REACTIONS (3)
  - Cardiac disorder [Not Recovered/Not Resolved]
  - Cardiac operation [Recovered/Resolved]
  - Cardiac failure [Recovered/Resolved]
